FAERS Safety Report 6061066-9 (Version None)
Quarter: 2009Q1

REPORT INFORMATION
  Report Type: 
  Country: None (occurrence: None)
  Receive Date: 20090202
  Receipt Date: 20090115
  Transmission Date: 20090719
  Serious: Yes (Life-Threatening, Hospitalization)
  Sender: FDA-Public Use
  Company Number: FR-SANOFI-SYNTHELABO-A02200900159

PATIENT
  Sex: Male

DRUGS (5)
  1. ELOXATIN [Suspect]
     Indication: GASTRIC CANCER
     Route: 042
     Dates: start: 20081020, end: 20081020
  2. DEXAMETHASONE [Concomitant]
     Indication: PREMEDICATION
     Route: 065
     Dates: start: 20081020
  3. CALCIUM LEVOFOLINATE DAKOTA PHARM [Concomitant]
     Indication: GASTRIC CANCER
     Route: 042
     Dates: start: 20081020, end: 20081020
  4. ONDANSETRON HYDROCHLORIDE [Concomitant]
     Indication: PREMEDICATION
     Route: 042
     Dates: start: 20081020, end: 20081020
  5. FLUOROURACILE DAKOTA PHARM [Concomitant]
     Indication: GASTRIC CANCER
     Route: 041
     Dates: start: 20081020, end: 20081021

REACTIONS (3)
  - CHILLS [None]
  - DYSPNOEA [None]
  - FEBRILE BONE MARROW APLASIA [None]
